FAERS Safety Report 18738896 (Version 6)
Quarter: 2021Q2

REPORT INFORMATION
  Report Type: Report from Study
  Country: None (occurrence: FR)
  Receive Date: 20210114
  Receipt Date: 20210421
  Transmission Date: 20210717
  Serious: Yes (Life-Threatening, Hospitalization, Other)
  Sender: FDA-Public Use
  Company Number: FR-ABBVIE-21K-056-3729449-00

PATIENT
  Age: 63 Year
  Sex: Female
  Weight: 77 kg

DRUGS (2)
  1. SKYRIZI [Suspect]
     Active Substance: RISANKIZUMAB-RZAA
     Route: 058
     Dates: start: 20201217, end: 20201217
  2. SKYRIZI [Suspect]
     Active Substance: RISANKIZUMAB-RZAA
     Indication: PSORIASIS
     Route: 058
     Dates: start: 20201119, end: 20201119

REACTIONS (9)
  - Chest pain [Recovered/Resolved]
  - Pleural effusion [Recovered/Resolved]
  - Myocarditis [Unknown]
  - Abdominal distension [Unknown]
  - Scar pain [Unknown]
  - Acute coronary syndrome [Recovered/Resolved]
  - Interstitial lung disease [Unknown]
  - Arthralgia [Unknown]
  - Troponin increased [Recovered/Resolved]

NARRATIVE: CASE EVENT DATE: 2021
